FAERS Safety Report 25180794 (Version 1)
Quarter: 2025Q2

REPORT INFORMATION
  Report Type: Spontaneous
  Country: FR (occurrence: FR)
  Receive Date: 20250409
  Receipt Date: 20250409
  Transmission Date: 20250717
  Serious: Yes (Congenital Anomaly)
  Sender: BOEHRINGER INGELHEIM
  Company Number: None

PATIENT
  Age: 0 Year
  Sex: Female
  Weight: 3.67 kg

DRUGS (3)
  1. SPIRIVA [Suspect]
     Active Substance: TIOTROPIUM BROMIDE MONOHYDRATE
     Indication: Maternal exposure timing unspecified
  2. XOLAIR [Suspect]
     Active Substance: OMALIZUMAB
     Indication: Maternal exposure timing unspecified
     Dates: start: 202102
  3. SYMBICORT [Suspect]
     Active Substance: BUDESONIDE\FORMOTEROL FUMARATE DIHYDRATE
     Indication: Maternal exposure timing unspecified

REACTIONS (1)
  - Ventricular septal defect [Not Recovered/Not Resolved]

NARRATIVE: CASE EVENT DATE: 20240101
